FAERS Safety Report 15343610 (Version 1)
Quarter: 2018Q3

REPORT INFORMATION
  Report Type: Spontaneous
  Country: US (occurrence: US)
  Receive Date: 20180903
  Receipt Date: 20180903
  Transmission Date: 20181010
  Serious: No
  Sender: FDA-Public Use
  Company Number: US-PFIZER INC-2018347951

PATIENT

DRUGS (1)
  1. BICILLIN L?A [Suspect]
     Active Substance: PENICILLIN G BENZATHINE
     Dosage: UNK

REACTIONS (3)
  - Muscle twitching [Unknown]
  - Vision blurred [Unknown]
  - Strabismus [Unknown]
